FAERS Safety Report 7222606-7 (Version None)
Quarter: 2011Q1

REPORT INFORMATION
  Report Type: 
  Country: None (occurrence: None)
  Receive Date: 20110112
  Receipt Date: 20110107
  Transmission Date: 20110831
  Serious: No
  Sender: FDA-Public Use
  Company Number: US-PFIZER INC-2011004929

PATIENT
  Age: 53 Year
  Sex: Male

DRUGS (5)
  1. LIPITOR [Suspect]
     Dosage: UNK, QOD
  2. METFORMIN HCL [Suspect]
     Dosage: UNK
  3. LEVOTHYROXINE SODIUM [Suspect]
     Dosage: UNK
  4. LIPITOR [Suspect]
     Dosage: UNK, QD
  5. METOPROLOL SUCCINATE [Suspect]
     Dosage: UNK

REACTIONS (2)
  - ARTHRALGIA [None]
  - BACK PAIN [None]
